FAERS Safety Report 4560441-9 (Version None)
Quarter: 2005Q1

REPORT INFORMATION
  Report Type: 
  Country: None (occurrence: None)
  Receive Date: 20050125
  Receipt Date: 20030211
  Transmission Date: 20050727
  Serious: Yes (Hospitalization, Other)
  Sender: FDA-Public Use
  Company Number: A0531914A

PATIENT
  Age: 63 Year
  Sex: Male
  Weight: 75 kg

DRUGS (3)
  1. COMMIT [Suspect]
     Indication: SMOKING CESSATION THERAPY
     Dosage: 4MG UNKNOWN
     Route: 002
     Dates: start: 20030210, end: 20030101
  2. SUPER POLIGRIP ORIGINAL DENTURE ADHESIVE CREAM [Concomitant]
     Indication: TOOTH DISORDER
  3. UNSPECIFIED MEDICATIONS [Concomitant]

REACTIONS (2)
  - HICCUPS [None]
  - MYOCARDIAL INFARCTION [None]
